FAERS Safety Report 6151874-8 (Version None)
Quarter: 2009Q2

REPORT INFORMATION
  Report Type: 
  Country: None (occurrence: None)
  Receive Date: 20090410
  Receipt Date: 20090402
  Transmission Date: 20091009
  Serious: Yes (Hospitalization)
  Sender: FDA-Public Use
  Company Number: US-ELI_LILLY_AND_COMPANY-US200904000563

PATIENT
  Sex: Female

DRUGS (11)
  1. HUMULIN R [Suspect]
     Dosage: UNK, AS NEEDED
  2. HUMULIN R [Suspect]
     Dosage: 16 U, 3/D
  3. NEXIUM [Concomitant]
     Dosage: 40 MG, UNK
  4. ALLEGRA [Concomitant]
     Dosage: 180 MG, UNK
  5. LISINOPRIL [Concomitant]
     Dosage: 40 MG, 2/D
  6. SIMVASTATIN [Concomitant]
     Dosage: 80 MG, UNK
  7. LANTUS [Concomitant]
     Dosage: UNK, AS NEEDED
  8. LEVOTHYROXINE SODIUM [Concomitant]
  9. PLAVIX [Concomitant]
     Dosage: 75 MG, UNK
  10. ZETIA [Concomitant]
     Dosage: 10 MG, UNK
  11. INSULIN [Concomitant]

REACTIONS (3)
  - BLOOD GLUCOSE DECREASED [None]
  - BLOOD GLUCOSE INCREASED [None]
  - CEREBROVASCULAR ACCIDENT [None]
